FAERS Safety Report 6080964-3 (Version None)
Quarter: 2009Q1

REPORT INFORMATION
  Report Type: 
  Country: None (occurrence: None)
  Receive Date: 20090217
  Receipt Date: 20090211
  Transmission Date: 20090719
  Serious: No
  Sender: FDA-Public Use
  Company Number: US-B.I. PHARMACEUTICALS,INC./RIDGEFIELD-2009-BP-01034BP

PATIENT
  Age: 65 Year
  Sex: Male
  Weight: 76 kg

DRUGS (12)
  1. MIRAPEX [Suspect]
     Indication: RESTLESS LEGS SYNDROME
     Dosage: .25MG
  2. MIRAPEX [Suspect]
     Indication: PAIN IN EXTREMITY
  3. MIRAPEX [Suspect]
     Indication: MUSCLE SPASMS
  4. MIRAPEX [Suspect]
     Indication: DYSKINESIA
  5. KLONOPIN [Concomitant]
     Indication: SLEEP DISORDER
  6. CRESTOR [Concomitant]
  7. PREVACID [Concomitant]
  8. ZANTAC [Concomitant]
  9. ALL DAY ENERGY GREENS [Concomitant]
  10. ASCORBIC ACID [Concomitant]
  11. VITAMIN D [Concomitant]
  12. GARLIC TABLETS [Concomitant]

REACTIONS (2)
  - DISCOMFORT [None]
  - DRUG INEFFECTIVE [None]
